FAERS Safety Report 19303859 (Version 2)
Quarter: 2021Q3

REPORT INFORMATION
  Report Type: Spontaneous
  Country: AU (occurrence: AU)
  Receive Date: 20210525
  Receipt Date: 20210716
  Transmission Date: 20211014
  Serious: Yes (Other)
  Sender: FDA-Public Use
  Company Number: AU-SA-2021SA172568

PATIENT
  Age: 20 Year
  Sex: Male

DRUGS (1)
  1. DUPIXENT [Suspect]
     Active Substance: DUPILUMAB
     Indication: ECZEMA
     Dosage: UNK
     Route: 065
     Dates: start: 201912

REACTIONS (6)
  - Flushing [Unknown]
  - Erythema [Unknown]
  - Depressed mood [Unknown]
  - Emotional distress [Unknown]
  - Suicidal ideation [Unknown]
  - Mental status changes [Unknown]

NARRATIVE: CASE EVENT DATE: 201912
